FAERS Safety Report 8431679-5 (Version None)
Quarter: 2012Q2

REPORT INFORMATION
  Report Type: 
  Country: None (occurrence: None)
  Receive Date: 20120613
  Receipt Date: 20120531
  Transmission Date: 20120825
  Serious: Yes (Other)
  Sender: FDA-Public Use
  Company Number: DK-JNJFOC-20120605340

PATIENT
  Sex: Male

DRUGS (5)
  1. PALEXIA [Suspect]
     Indication: BACK PAIN
     Route: 048
  2. OXYCODONE HCL [Concomitant]
     Indication: PRODUCT USED FOR UNKNOWN INDICATION
     Route: 065
  3. ACETAMINOPHEN [Concomitant]
     Indication: PRODUCT USED FOR UNKNOWN INDICATION
     Route: 065
  4. PALEXIA [Suspect]
     Route: 048
     Dates: end: 20120424
  5. PALEXIA [Suspect]
     Route: 048
     Dates: start: 20110817

REACTIONS (1)
  - CATARACT [None]
